FAERS Safety Report 9306914 (Version 1)
Quarter: 2013Q2

REPORT INFORMATION
  Report Type: Spontaneous
  Country: FR (occurrence: FR)
  Receive Date: 20130523
  Receipt Date: 20130523
  Transmission Date: 20140414
  Serious: Yes (Other)
  Sender: FDA-Public Use
  Company Number: FR-GILEAD-2013-0075594

PATIENT
  Age: 43 Year
  Sex: Female

DRUGS (6)
  1. EVIPLERA [Suspect]
     Indication: HIV INFECTION
     Dosage: UNK
     Route: 048
     Dates: start: 20121214, end: 20130220
  2. TRUVADA [Suspect]
     Indication: HIV INFECTION
     Dosage: UNK
     Route: 048
     Dates: start: 20130220
  3. KALETRA [Suspect]
     Indication: HIV INFECTION
     Dosage: UNK
     Route: 048
     Dates: start: 20130220
  4. SERESTA [Concomitant]
  5. ZITHROMAX [Concomitant]
  6. PENTACARINAT [Concomitant]

REACTIONS (2)
  - Foetal death [Recovered/Resolved]
  - Abortion spontaneous [Recovered/Resolved]
